FAERS Safety Report 4346340-6 (Version None)
Quarter: 2004Q1

REPORT INFORMATION
  Report Type: 
  Country: None (occurrence: None)
  Receive Date: 20040325
  Receipt Date: 20040122
  Transmission Date: 20041129
  Serious: No
  Sender: FDA-Public Use
  Company Number: USA031254723

PATIENT
  Age: 68 Year
  Sex: Female

DRUGS (10)
  1. FORTEO [Suspect]
     Dates: start: 20031212
  2. ALBUTEROL [Concomitant]
  3. ATROVENT [Concomitant]
  4. CALCIUM WITH VITAMIN D [Concomitant]
  5. LEVAQUIN [Concomitant]
  6. ATIVAN [Concomitant]
  7. WELLBUTRIN [Concomitant]
  8. ADVAIR DISKUS 100/50 [Concomitant]
  9. VITAMIN E [Concomitant]
  10. OMEGA [Concomitant]

REACTIONS (5)
  - ASTHENIA [None]
  - INJECTION SITE ERYTHEMA [None]
  - INJECTION SITE RASH [None]
  - INJECTION SITE REACTION [None]
  - POLLAKIURIA [None]
